FAERS Safety Report 19862742 (Version 2)
Quarter: 2022Q4

REPORT INFORMATION
  Report Type: Spontaneous
  Country: US (occurrence: US)
  Receive Date: 20210921
  Receipt Date: 20221016
  Transmission Date: 20230113
  Serious: No
  Sender: FDA-Public Use
  Company Number: US-CELLTRION INC.-2020US026148

PATIENT

DRUGS (4)
  1. INFLECTRA [Suspect]
     Active Substance: INFLIXIMAB-DYYB
     Indication: Cranial nerve disorder
     Dosage: UNK
     Route: 065
  2. INFLECTRA [Suspect]
     Active Substance: INFLIXIMAB-DYYB
     Indication: Intracranial mass
     Dosage: 5 MG/KG ON DAY 1, WEEK 2, WEEK 4, WEEK 6 THEN EVERY 6 WEEKS
  3. INFLECTRA [Suspect]
     Active Substance: INFLIXIMAB-DYYB
     Indication: VIth nerve paralysis
  4. INFLECTRA [Suspect]
     Active Substance: INFLIXIMAB-DYYB
     Indication: Inappropriate antidiuretic hormone secretion

REACTIONS (2)
  - Off label use [Unknown]
  - Off label use [Unknown]
